FAERS Safety Report 4680106-2 (Version None)
Quarter: 2005Q2

REPORT INFORMATION
  Report Type: 
  Country: None (occurrence: None)
  Receive Date: 20050602
  Receipt Date: 20050523
  Transmission Date: 20051028
  Serious: Yes (Hospitalization)
  Sender: FDA-Public Use
  Company Number: FR-BRISTOL-MYERS SQUIBB COMPANY-12980496

PATIENT
  Age: 88 Year
  Sex: Female

DRUGS (5)
  1. COUMADIN [Suspect]
     Route: 048
     Dates: start: 20010701, end: 20050426
  2. IZILOX [Suspect]
     Indication: BRONCHITIS
     Dates: start: 20050422, end: 20050426
  3. HEMIGOXINE NATIVELLE [Concomitant]
     Dates: start: 20040701
  4. EUPRESSYL [Concomitant]
     Dates: start: 20040701
  5. CORDARONE [Concomitant]
     Dates: start: 20040701

REACTIONS (4)
  - BRONCHITIS [None]
  - DRUG INTERACTION [None]
  - INTERNATIONAL NORMALISED RATIO INCREASED [None]
  - PROTHROMBIN LEVEL DECREASED [None]
